FAERS Safety Report 24830440 (Version 2)
Quarter: 2025Q1

REPORT INFORMATION
  Report Type: Spontaneous
  Country: US (occurrence: US)
  Receive Date: 20250110
  Receipt Date: 20250226
  Transmission Date: 20250409
  Serious: No
  Sender: PFIZER
  Company Number: US-PFIZER INC-PV202400135535

PATIENT
  Age: 94 Year
  Sex: Female

DRUGS (2)
  1. VYNDAMAX [Suspect]
     Active Substance: TAFAMIDIS
     Indication: Acquired ATTR amyloidosis
  2. VYNDAMAX [Suspect]
     Active Substance: TAFAMIDIS
     Indication: Heart rate irregular
     Dosage: 61MG; TAKES ONE PER DAY BY MOUTH
     Route: 048

REACTIONS (2)
  - Confusional state [Unknown]
  - Intentional product misuse [Unknown]
